FAERS Safety Report 4325521-1 (Version None)
Quarter: 2004Q1

REPORT INFORMATION
  Report Type: 
  Country: None (occurrence: None)
  Receive Date: 20040324
  Receipt Date: 20040304
  Transmission Date: 20041129
  Serious: Yes (Other)
  Sender: FDA-Public Use
  Company Number: FR_040103467

PATIENT
  Age: 81 Year
  Sex: Male
  Weight: 70 kg

DRUGS (5)
  1. ZYPREXA [Suspect]
     Indication: PSYCHOTIC DISORDER
     Dosage: 5 MG/1 DAY
     Dates: start: 20031106, end: 20040115
  2. PROZAC [Concomitant]
  3. IMOVANE (ZOPICLONE) [Concomitant]
  4. TERCIAN (CYAMEMAZINE) [Concomitant]
  5. LORAZEPAM [Concomitant]

REACTIONS (3)
  - ASTHENIA [None]
  - BRADYARRHYTHMIA [None]
  - SYNCOPE [None]
